FAERS Safety Report 17528312 (Version 3)
Quarter: 2020Q2

REPORT INFORMATION
  Report Type: Report from Study
  Country: None (occurrence: CA)
  Receive Date: 20200312
  Receipt Date: 20200624
  Transmission Date: 20200713
  Serious: Yes (Hospitalization, Other)
  Sender: FDA-Public Use
  Company Number: CA-ABBVIE-20K-028-3312385-00

PATIENT
  Sex: Male

DRUGS (2)
  1. PREDNISONE. [Concomitant]
     Active Substance: PREDNISONE
     Indication: PRODUCT USED FOR UNKNOWN INDICATION
  2. HUMIRA [Suspect]
     Active Substance: ADALIMUMAB
     Indication: CROHN^S DISEASE
     Route: 058
     Dates: start: 20181210

REACTIONS (8)
  - Rectal abscess [Unknown]
  - Gastrointestinal disorder [Unknown]
  - Surgery [Unknown]
  - Post procedural inflammation [Unknown]
  - Intestinal perforation [Unknown]
  - Cerebrovascular accident [Unknown]
  - Arthralgia [Unknown]
  - Postoperative abscess [Unknown]

NARRATIVE: CASE EVENT DATE: 2020
